FAERS Safety Report 5476819-5 (Version None)
Quarter: 2007Q4

REPORT INFORMATION
  Report Type: 
  Country: None (occurrence: None)
  Receive Date: 20071003
  Receipt Date: 20071003
  Transmission Date: 20080405
  Serious: Yes (Hospitalization)
  Sender: FDA-Public Use
  Company Number: None

PATIENT
  Age: 85 Year
  Sex: Female
  Weight: 74.8435 kg

DRUGS (2)
  1. VISUDYNE [Suspect]
     Indication: MACULAR DEGENERATION
     Dosage: 1 TIME IV
     Route: 042
     Dates: start: 20070522
  2. LUCENTIS [Suspect]
     Indication: MACULAR DEGENERATION
     Dosage: .5   1 TIME  INTRA-VITREAL
     Dates: start: 20070522

REACTIONS (1)
  - ATRIAL FIBRILLATION [None]
